FAERS Safety Report 22202082 (Version 1)
Quarter: 2023Q2

REPORT INFORMATION
  Report Type: Report from Study
  Country: US (occurrence: US)
  Receive Date: 20230412
  Receipt Date: 20230412
  Transmission Date: 20230722
  Serious: Yes (Hospitalization)
  Sender: FDA-Public Use
  Company Number: US-TAKEDA-2021TUS039279

PATIENT
  Sex: Female
  Weight: 33 kg

DRUGS (42)
  1. TEDUGLUTIDE [Suspect]
     Active Substance: TEDUGLUTIDE
     Indication: Short-bowel syndrome
     Dosage: 0.17 MILLILITER, QD
     Route: 058
  2. TEDUGLUTIDE [Suspect]
     Active Substance: TEDUGLUTIDE
     Indication: Short-bowel syndrome
     Dosage: 0.17 MILLILITER, QD
     Route: 058
  3. TEDUGLUTIDE [Suspect]
     Active Substance: TEDUGLUTIDE
     Indication: Short-bowel syndrome
     Dosage: 0.17 MILLILITER, QD
     Route: 058
  4. TEDUGLUTIDE [Suspect]
     Active Substance: TEDUGLUTIDE
     Indication: Short-bowel syndrome
     Dosage: 0.17 MILLILITER, QD
     Route: 058
  5. TEDUGLUTIDE [Suspect]
     Active Substance: TEDUGLUTIDE
     Indication: Stasis syndrome
     Dosage: 0.18 MILLILITER, QD
     Route: 058
  6. TEDUGLUTIDE [Suspect]
     Active Substance: TEDUGLUTIDE
     Indication: Stasis syndrome
     Dosage: 0.18 MILLILITER, QD
     Route: 058
  7. TEDUGLUTIDE [Suspect]
     Active Substance: TEDUGLUTIDE
     Indication: Stasis syndrome
     Dosage: 0.18 MILLILITER, QD
     Route: 058
  8. TEDUGLUTIDE [Suspect]
     Active Substance: TEDUGLUTIDE
     Indication: Stasis syndrome
     Dosage: 0.18 MILLILITER, QD
     Route: 058
  9. TEDUGLUTIDE [Suspect]
     Active Substance: TEDUGLUTIDE
     Dosage: 1.7 MILLIGRAM, QD
     Route: 058
     Dates: start: 20210225
  10. TEDUGLUTIDE [Suspect]
     Active Substance: TEDUGLUTIDE
     Dosage: 1.7 MILLIGRAM, QD
     Route: 058
     Dates: start: 20210225
  11. TEDUGLUTIDE [Suspect]
     Active Substance: TEDUGLUTIDE
     Dosage: 1.7 MILLIGRAM, QD
     Route: 058
     Dates: start: 20210225
  12. TEDUGLUTIDE [Suspect]
     Active Substance: TEDUGLUTIDE
     Dosage: 1.7 MILLIGRAM, QD
     Route: 058
     Dates: start: 20210225
  13. ALTEPLASE [Concomitant]
     Active Substance: ALTEPLASE
     Dosage: 1.2 MILLILITER, MONTHLY
     Route: 042
  14. AMOXICILLIN\CLAVULANATE POTASSIUM [Concomitant]
     Active Substance: AMOXICILLIN\CLAVULANATE POTASSIUM
     Dosage: 4 MILLILITER, BID
     Route: 048
  15. CHLORHEXIDINE [Concomitant]
     Active Substance: CHLORHEXIDINE
     Dosage: UNK
     Route: 061
  16. CYANOCOBALAMIN [Concomitant]
     Active Substance: CYANOCOBALAMIN
     Dosage: 1 MILLILITER, Q2WEEKS
     Route: 030
  17. DEXTROSE [Concomitant]
     Active Substance: DEXTROSE\DEXTROSE MONOHYDRATE
     Dosage: 1250 MILLILITER, QD
     Route: 042
  18. ERGOCALCIFEROL [Concomitant]
     Active Substance: ERGOCALCIFEROL
     Dosage: 4000 INTERNATIONAL UNIT, QD
     Route: 048
  19. ALCOHOL [Concomitant]
     Active Substance: ALCOHOL
     Dosage: 1 MILLILITER, QD
     Route: 042
  20. FLAXSEED [Concomitant]
     Active Substance: FLAX SEED
     Dosage: 10 MILLILITER, TID
     Route: 065
  21. FLAXSEED [Concomitant]
     Active Substance: FLAX SEED
     Dosage: 1000 MILLIGRAM
     Route: 065
  22. HEPARIN SODIUM [Concomitant]
     Active Substance: HEPARIN SODIUM
     Dosage: 3 MILLILITER, QD
     Route: 065
  23. CARBOXYMETHYLCELLULOSE SODIUM [Concomitant]
     Active Substance: CARBOXYMETHYLCELLULOSE SODIUM
     Route: 061
  24. LMX 4 [Concomitant]
     Route: 061
  25. EMLA [Concomitant]
     Active Substance: LIDOCAINE\PRILOCAINE
     Route: 061
  26. LOPERAMIDE [Concomitant]
     Active Substance: LOPERAMIDE
     Dosage: 6 DOSAGE FORM, BID
     Route: 048
  27. LOPERAMIDE [Concomitant]
     Active Substance: LOPERAMIDE
     Dosage: 2 MILLIGRAM
     Route: 065
  28. MINERALS\VITAMINS [Concomitant]
     Active Substance: MINERALS\VITAMINS
     Dosage: 2 MILLILITER, QD
     Route: 048
  29. ONE-A-DAY MEN^S [Concomitant]
     Dosage: 1 DOSAGE FORM, QD
     Route: 048
  30. SODIUM CHLORIDE [Concomitant]
     Active Substance: SODIUM CHLORIDE
     Indication: Dehydration
     Dosage: 250 MILLILITER
     Route: 065
  31. SODIUM CHLORIDE [Concomitant]
     Active Substance: SODIUM CHLORIDE
     Dosage: 500 MILLILITER, QD
     Route: 065
  32. SODIUM CHLORIDE [Concomitant]
     Active Substance: SODIUM CHLORIDE
     Dosage: 5 MILLILITER
     Route: 042
  33. NYSTATIN [Concomitant]
     Active Substance: NYSTATIN
     Dosage: UNK, TID
     Route: 061
  34. NYSTOP [Concomitant]
     Active Substance: NYSTATIN
     Dosage: UNK, TID
     Route: 061
  35. PURE BAKING SODA [Concomitant]
     Active Substance: SODIUM BICARBONATE
     Dosage: UNK, BID
     Route: 065
  36. SULFASALAZINE [Concomitant]
     Active Substance: SULFASALAZINE
     Dosage: 1 DOSAGE FORM, BID
     Route: 048
  37. SLIPPERY ELM AND MATRIX SUPPORT [Concomitant]
     Route: 065
  38. OREGANO LEAF OIL [Concomitant]
     Active Substance: OREGANO LEAF OIL
     Route: 065
  39. CLARITIN [Concomitant]
     Active Substance: LORATADINE
     Dosage: 10 MILLIGRAM
     Route: 065
  40. AUGMENTIN [Concomitant]
     Active Substance: AMOXICILLIN\CLAVULANATE POTASSIUM
  41. VITAMIN B1 [Concomitant]
     Active Substance: THIAMINE HYDROCHLORIDE
     Dosage: 100 MILLIGRAM
     Route: 065
  42. VITAMIN D3 [Concomitant]
     Active Substance: CHOLECALCIFEROL

REACTIONS (4)
  - Pyrexia [Unknown]
  - Weight increased [Unknown]
  - Hyperphagia [Unknown]
  - Incorrect product administration duration [Unknown]
